FAERS Safety Report 16548481 (Version 1)
Quarter: 2019Q3

REPORT INFORMATION
  Report Type: Spontaneous
  Country: JP (occurrence: JP)
  Receive Date: 20190709
  Receipt Date: 20190709
  Transmission Date: 20191004
  Serious: Yes (Other)
  Sender: FDA-Public Use
  Company Number: JP-ALLERGAN-1928048US

PATIENT
  Sex: Male

DRUGS (3)
  1. ALPHAGAN P [Suspect]
     Active Substance: BRIMONIDINE TARTRATE
     Indication: NORMAL TENSION GLAUCOMA
     Dosage: UNK, BID
     Route: 047
     Dates: start: 20150219, end: 20190610
  2. LUMIGAN [Suspect]
     Active Substance: BIMATOPROST
     Indication: NORMAL TENSION GLAUCOMA
     Dosage: UNK, QD
     Route: 047
     Dates: start: 20140906, end: 20190610
  3. TEARBALANCE [Suspect]
     Active Substance: HYALURONATE SODIUM
     Indication: CORNEAL EROSION
     Dosage: 1 GTT, QID
     Route: 047
     Dates: start: 20141227, end: 20190610

REACTIONS (1)
  - Corneal opacity [Unknown]

NARRATIVE: CASE EVENT DATE: 20190610
